FAERS Safety Report 8985230 (Version 1)
Quarter: 2012Q4

REPORT INFORMATION
  Report Type: 
  Country: BR (occurrence: BR)
  Receive Date: 20121226
  Receipt Date: 20121226
  Transmission Date: 20130627
  Serious: Yes (Hospitalization)
  Sender: FDA-Public Use
  Company Number: BR-PFIZER INC-2012326157

PATIENT
  Age: 46 Year
  Sex: Female
  Weight: 58 kg

DRUGS (1)
  1. LIPITOR [Suspect]
     Indication: CHOLESTEROL
     Dosage: 20 mg (one tablet), 1x/day
     Route: 048
     Dates: start: 2008, end: 2012

REACTIONS (1)
  - Cerebrovascular accident [Unknown]
